FAERS Safety Report 5198864-X (Version None)
Quarter: 2006Q4

REPORT INFORMATION
  Report Type: 
  Country: None (occurrence: None)
  Receive Date: 20060926
  Receipt Date: 20060223
  Transmission Date: 20070319
  Serious: Yes (Hospitalization, Disabling)
  Sender: FDA-Public Use
  Company Number: 2006029344

PATIENT
  Age: 52 Year
  Sex: Male

DRUGS (8)
  1. NARDIL [Suspect]
     Indication: DEPRESSION
     Dosage: 90 MG (30 MG, 3 IN 1 D), ORAL
     Route: 048
     Dates: start: 19850101
  2. ZOLOFT [Suspect]
     Indication: DEPRESSION
     Dosage: ORAL
     Route: 048
     Dates: start: 19990101, end: 19990101
  3. ATIVAN [Concomitant]
  4. KLONOPIN [Concomitant]
  5. TRAZODONE HCL [Concomitant]
  6. SYNTHROID [Concomitant]
  7. DRUG USED IN DIABETES (DRUG USED IN DIABETES) [Concomitant]
  8. ALL OTHER THERAPEUTIC PRODUCTS (ALL OTHER THERAPEUTIC PRODUCTS) [Concomitant]

REACTIONS (5)
  - ANXIETY [None]
  - ERECTILE DYSFUNCTION [None]
  - HUNGER [None]
  - LOSS OF LIBIDO [None]
  - WEIGHT INCREASED [None]
